FAERS Safety Report 7541632-1 (Version None)
Quarter: 2011Q2

REPORT INFORMATION
  Report Type: 
  Country: None (occurrence: None)
  Receive Date: 20110603
  Receipt Date: 20110525
  Transmission Date: 20111010
  Serious: Yes (Hospitalization)
  Sender: FDA-Public Use
  Company Number: 2011MA006562

PATIENT
  Age: 75 Year
  Sex: Female

DRUGS (2)
  1. LOSARTAN POTASSIUM [Suspect]
     Dosage: 100 MG, QD
     Dates: start: 20110508, end: 20110509
  2. ENALAPRIL MALEATE [Concomitant]

REACTIONS (2)
  - SMALL BOWEL ANGIOEDEMA [None]
  - PRODUCT SUBSTITUTION ISSUE [None]
